FAERS Safety Report 5858690-2 (Version None)
Quarter: 2008Q3

REPORT INFORMATION
  Report Type: 
  Country: None (occurrence: None)
  Receive Date: 20080826
  Receipt Date: 20080826
  Transmission Date: 20090109
  Serious: Yes (Other)
  Sender: FDA-Public Use
  Company Number: FR-BOEHRINGER INGELHEIM GMBH, GERMANY-2008-DE-05010GD

PATIENT
  Age: 73 Year
  Sex: Male
  Weight: 70 kg

DRUGS (10)
  1. CLONIDINE [Suspect]
     Indication: CARDIAC ARREST
     Route: 042
  2. CLONIDINE [Suspect]
     Indication: VENTRICULAR FIBRILLATION
  3. BUPIVACAINE [Concomitant]
     Indication: NERVE BLOCK
  4. LIDOCAINE [Concomitant]
     Indication: NERVE BLOCK
  5. DOBUTAMINE HCL [Concomitant]
     Indication: BLOOD PRESSURE MANAGEMENT
     Dosage: 5 MCG/KG/MIN
  6. EPINEPHRINE [Concomitant]
     Indication: CARDIAC ARREST
  7. EPINEPHRINE [Concomitant]
     Indication: NERVE BLOCK
  8. THIOPENTAL SODIUM [Concomitant]
     Route: 042
  9. ALPRAZOLAM [Concomitant]
     Indication: ANAESTHETIC PREMEDICATION
     Route: 048
  10. METOPROLOL TARTRATE [Concomitant]

REACTIONS (1)
  - DRUG EFFECT DECREASED [None]
